FAERS Safety Report 4956888-9 (Version None)
Quarter: 2006Q1

REPORT INFORMATION
  Report Type: 
  Country: None (occurrence: None)
  Receive Date: 20060323
  Receipt Date: 20060310
  Transmission Date: 20060701
  Serious: Yes (Other)
  Sender: FDA-Public Use
  Company Number: 2006017506

PATIENT
  Age: 76 Year
  Sex: Female
  Weight: 63.5036 kg

DRUGS (4)
  1. DETROL LA [Suspect]
     Indication: URINARY INCONTINENCE
     Dosage: 2 MG (2 MG, 1 IN 1 D),
  2. ANTIHYPERTENSIVES (ANTIHYPERTENSIVES) [Concomitant]
  3. CHOLESTEROL- AND TRIGLYCERIDE REDUCERS (CHOLESTEROL- AND TRIGLYCERIDE [Concomitant]
  4. ALL OTHER THERAPEUTIC PRODUCTS (ALL OTHER THERAPEUTIC PRODUCTS) [Concomitant]

REACTIONS (4)
  - CATARACT [None]
  - DEMENTIA [None]
  - EXTRAOCULAR MUSCLE PARESIS [None]
  - MALIGNANT NEOPLASM OF EYE [None]
